FAERS Safety Report 4644736-6 (Version None)
Quarter: 2005Q2

REPORT INFORMATION
  Report Type: 
  Country: None (occurrence: None)
  Receive Date: 20050425
  Receipt Date: 20050425
  Transmission Date: 20051028
  Serious: No
  Sender: FDA-Public Use
  Company Number: None

PATIENT
  Sex: Female
  Weight: 104.3273 kg

DRUGS (7)
  1. NAVELBINE [Suspect]
     Indication: BREAST CANCER
     Dosage: 55MG   IV INFUSION
     Route: 042
  2. WARFARIN SODIUM [Concomitant]
  3. PHENYTOIN [Concomitant]
  4. MORPHINE [Concomitant]
  5. CLONAZEPAM [Concomitant]
  6. LISINOPRIL [Concomitant]
  7. LAXATIVES [Concomitant]

REACTIONS (3)
  - ANTICONVULSANT DRUG LEVEL DECREASED [None]
  - DRUG INTERACTION [None]
  - INTERNATIONAL NORMALISED RATIO INCREASED [None]
